FAERS Safety Report 5041999-2 (Version None)
Quarter: 2006Q2

REPORT INFORMATION
  Report Type: 
  Country: None (occurrence: None)
  Receive Date: 20060627
  Receipt Date: 20060615
  Transmission Date: 20061013
  Serious: Yes (Death, Hospitalization)
  Sender: FDA-Public Use
  Company Number: 06-023

PATIENT
  Age: 86 Year
  Sex: Female

DRUGS (5)
  1. LORCET (HYDROCODONE BITARTRATE AND ACETAMINOPHEN) 10MG/650MG [Suspect]
  2. LANOXIN [Concomitant]
  3. CELEBREX [Concomitant]
  4. BETAPACE [Concomitant]
  5. ELAVIL [Concomitant]

REACTIONS (1)
  - DEATH [None]
